FAERS Safety Report 5520862-4 (Version None)
Quarter: 2007Q4

REPORT INFORMATION
  Report Type: 
  Country: None (occurrence: None)
  Receive Date: 20071119
  Receipt Date: 20071113
  Transmission Date: 20080405
  Serious: Yes (Other)
  Sender: FDA-Public Use
  Company Number: B0493066A

PATIENT
  Age: 80 Year
  Sex: Female
  Weight: 58 kg

DRUGS (4)
  1. ZELITREX [Suspect]
     Indication: HERPES ZOSTER
     Dosage: 1TAB THREE TIMES PER DAY
     Route: 048
     Dates: start: 20071020, end: 20071024
  2. NON STEROIDAL ANTIINFLAMMATORY [Concomitant]
  3. STRUCTUM [Concomitant]
     Dosage: 2CAP PER DAY
     Route: 048
  4. DI-ANTALVIC [Concomitant]
     Indication: PAIN
     Dosage: 3CAP PER DAY
     Route: 048

REACTIONS (4)
  - DISORIENTATION [None]
  - DIZZINESS [None]
  - DRUG ADMINISTRATION ERROR [None]
  - HALLUCINATION [None]
